FAERS Safety Report 4890802-X (Version None)
Quarter: 2006Q1

REPORT INFORMATION
  Report Type: 
  Country: None (occurrence: None)
  Receive Date: 20060123
  Receipt Date: 20060110
  Transmission Date: 20060701
  Serious: Yes (Other)
  Sender: FDA-Public Use
  Company Number: 2006007948

PATIENT
  Sex: Male
  Weight: 59.8748 kg

DRUGS (12)
  1. CAVERJECT [Suspect]
     Indication: ERECTILE DYSFUNCTION
     Dosage: (AS NECESSARY)
  2. VASOTEC [Concomitant]
  3. NORVASC [Concomitant]
  4. SYNTHROID [Concomitant]
  5. PRILOSEC [Concomitant]
  6. CRESTOR [Concomitant]
  7. ECOTRIN (ACETYLSALICYLIC ACID) [Concomitant]
  8. ZETIA [Concomitant]
  9. FLONASE [Concomitant]
  10. COENZYME Q10 [Concomitant]
  11. GLUCOSAMINE W/CHONDROITIN SULFATES (ASCORBIC ACID, CHONDROITIN SULFATE [Concomitant]
  12. MULTIVITAMINS W/MINERALS (MINERALS NOS, VITAMINS NOS) [Concomitant]

REACTIONS (5)
  - ARTHRALGIA [None]
  - DRUG EFFECT DECREASED [None]
  - POOR QUALITY DRUG ADMINISTERED [None]
  - POST PROCEDURAL COMPLICATION [None]
  - WRONG TECHNIQUE IN DRUG USAGE PROCESS [None]
